FAERS Safety Report 10842901 (Version 1)
Quarter: 2015Q1

REPORT INFORMATION
  Report Type: Report from Study
  Country: US (occurrence: US)
  Receive Date: 20150220
  Receipt Date: 20150220
  Transmission Date: 20150721
  Serious: No
  Sender: FDA-Public Use
  Company Number: US-ABBVIE-14P-163-1259003-00

PATIENT
  Age: 30 Year
  Sex: Female
  Weight: 74.91 kg

DRUGS (18)
  1. HUMIRA [Suspect]
     Active Substance: ADALIMUMAB
     Indication: AXIAL SPONDYLOARTHRITIS
     Dates: start: 20131229
  2. ALLEGRA [Concomitant]
     Active Substance: FEXOFENADINE HYDROCHLORIDE
     Indication: SEASONAL ALLERGY
  3. OMEGA VITAMIN D [Concomitant]
     Indication: AUTOIMMUNE THYROIDITIS
  4. GABAPENTIN. [Concomitant]
     Active Substance: GABAPENTIN
     Indication: NEURALGIA
  5. FLUTICOSONE PROPIONATE [Concomitant]
     Indication: SEASONAL ALLERGY
  6. PROBIOTIC [Concomitant]
     Active Substance: PROBIOTICS NOS
     Indication: IRRITABLE BOWEL SYNDROME
  7. FIBER SUPPLEMENT [Concomitant]
     Indication: IRRITABLE BOWEL SYNDROME
  8. OMEPRAZOLE. [Concomitant]
     Active Substance: OMEPRAZOLE
     Indication: IRRITABLE BOWEL SYNDROME
  9. LIOTHYRONINE [Concomitant]
     Active Substance: LIOTHYRONINE
     Indication: AUTOIMMUNE THYROIDITIS
  10. TRAMADOL [Concomitant]
     Active Substance: TRAMADOL
     Indication: PAIN
  11. GABAPENTIN. [Concomitant]
     Active Substance: GABAPENTIN
     Indication: FIBROMYALGIA
  12. SAVELLA [Concomitant]
     Active Substance: MILNACIPRAN HYDROCHLORIDE
     Indication: FIBROMYALGIA
  13. LIDODERM [Concomitant]
     Active Substance: LIDOCAINE
     Indication: PAIN
     Dosage: AT BEDTIME DAILY
  14. ZOFRAN [Concomitant]
     Active Substance: ONDANSETRON HYDROCHLORIDE
     Indication: IRRITABLE BOWEL SYNDROME
  15. HYOMAX [Concomitant]
     Active Substance: HYOSCYAMINE SULFATE
     Indication: IRRITABLE BOWEL SYNDROME
  16. LEVOTHYROXINE [Concomitant]
     Active Substance: LEVOTHYROXINE
     Indication: AUTOIMMUNE THYROIDITIS
  17. ROBAXIN [Concomitant]
     Active Substance: METHOCARBAMOL
     Indication: MUSCLE SPASMS
  18. MULTIVITAMIN [Concomitant]
     Active Substance: VITAMINS
     Indication: PRODUCT USED FOR UNKNOWN INDICATION

REACTIONS (3)
  - Migraine [Not Recovered/Not Resolved]
  - Axial spondyloarthritis [Not Recovered/Not Resolved]
  - Migraine [Recovering/Resolving]

NARRATIVE: CASE EVENT DATE: 20131230
